FAERS Safety Report 26053497 (Version 2)
Quarter: 2025Q4

REPORT INFORMATION
  Report Type: Report from Study
  Country: US (occurrence: US)
  Receive Date: 20251117
  Receipt Date: 20251124
  Transmission Date: 20260117
  Serious: Yes (Other)
  Sender: ABBVIE
  Company Number: US-ABBVIE-5872568

PATIENT
  Age: 69 Year
  Sex: Male

DRUGS (2)
  1. SKYRIZI [Suspect]
     Active Substance: RISANKIZUMAB-RZAA
     Indication: Psoriasis
     Route: 058
     Dates: start: 20230315, end: 2024
  2. SKYRIZI [Suspect]
     Active Substance: RISANKIZUMAB-RZAA
     Route: 058
     Dates: start: 20210321

REACTIONS (10)
  - Knee operation [Not Recovered/Not Resolved]
  - Haemorrhage [Unknown]
  - Psoriasis [Unknown]
  - Mental disorder [Unknown]
  - Depression [Not Recovered/Not Resolved]
  - Attention deficit hyperactivity disorder [Unknown]
  - Hernia [Not Recovered/Not Resolved]
  - Cough [Unknown]
  - General physical health deterioration [Unknown]
  - Scab [Unknown]

NARRATIVE: CASE EVENT DATE: 20250101
